FAERS Safety Report 14307189 (Version 1)
Quarter: 2017Q4

REPORT INFORMATION
  Report Type: Spontaneous
  Country: US (occurrence: US)
  Receive Date: 20171220
  Receipt Date: 20171220
  Transmission Date: 20180321
  Serious: No
  Sender: FDA-Public Use
  Company Number: US-TEVA-778219USA

PATIENT
  Sex: Male

DRUGS (2)
  1. METRONIDAZOLE. [Suspect]
     Active Substance: METRONIDAZOLE
     Indication: PROPHYLAXIS
  2. METRONIDAZOLE. [Suspect]
     Active Substance: METRONIDAZOLE
     Indication: CROHN^S DISEASE
     Dosage: 750 MILLIGRAM DAILY;
     Route: 065

REACTIONS (8)
  - Muscle twitching [Unknown]
  - Dyspepsia [Unknown]
  - Product quality issue [Unknown]
  - Muscle spasms [Unknown]
  - Diarrhoea [Unknown]
  - Hypoaesthesia [Unknown]
  - Gluten sensitivity [Unknown]
  - Fatigue [Unknown]

NARRATIVE: CASE EVENT DATE: 201704
